FAERS Safety Report 25413074 (Version 1)
Quarter: 2025Q2

REPORT INFORMATION
  Report Type: Spontaneous
  Country: RS (occurrence: None)
  Receive Date: 20250606
  Receipt Date: 20250606
  Transmission Date: 20250716
  Serious: Yes (Life-Threatening, Disabling)
  Sender: FDA-CTU
  Company Number: None

PATIENT
  Age: 41 Year
  Sex: Female
  Weight: 75 kg

DRUGS (2)
  1. PAROXETINE HYDROCHLORIDE [Suspect]
     Active Substance: PAROXETINE HYDROCHLORIDE
  2. PROZAC [Suspect]
     Active Substance: FLUOXETINE HYDROCHLORIDE

REACTIONS (19)
  - Withdrawal syndrome [None]
  - Brain injury [None]
  - Akathisia [None]
  - Insomnia [None]
  - Vomiting [None]
  - Diarrhoea [None]
  - Dyspepsia [None]
  - Hyperacusis [None]
  - Ageusia [None]
  - Paraesthesia [None]
  - Hypoaesthesia [None]
  - Neuropathy peripheral [None]
  - Restlessness [None]
  - Sleep disorder [None]
  - Anxiety [None]
  - Fear [None]
  - Vibratory sense increased [None]
  - Nausea [None]
  - Vertigo [None]

NARRATIVE: CASE EVENT DATE: 20240602
